FAERS Safety Report 17143056 (Version 1)
Quarter: 2019Q4

REPORT INFORMATION
  Report Type: Report from Study
  Country: US (occurrence: US)
  Receive Date: 20191211
  Receipt Date: 20191211
  Transmission Date: 20200122
  Serious: Yes (Death, Hospitalization)
  Sender: FDA-Public Use
  Company Number: NVSC2019US001886

PATIENT
  Age: 69 Year
  Sex: Female
  Weight: 51.7 kg

DRUGS (32)
  1. PENICILLIN [Concomitant]
     Active Substance: PENICILLIN
     Indication: STREPTOCOCCUS TEST POSITIVE
     Dosage: UNK
     Route: 065
     Dates: start: 201509
  2. VITAMIN B12 [Concomitant]
     Active Substance: CYANOCOBALAMIN
     Indication: PRODUCT USED FOR UNKNOWN INDICATION
     Dosage: UNK
     Route: 048
     Dates: end: 20190716
  3. ZOFRAN [Concomitant]
     Active Substance: ONDANSETRON HYDROCHLORIDE
     Indication: VOMITING
  4. AMOXICILLIN. [Concomitant]
     Active Substance: AMOXICILLIN
     Indication: DRUG INTOLERANCE
     Dosage: UNK
     Route: 065
     Dates: start: 201601
  5. TYLENOL [Concomitant]
     Active Substance: ACETAMINOPHEN
     Indication: PAIN
     Dosage: 2 DF, Q4H (PRN)
     Route: 048
     Dates: end: 20190716
  6. ZITHROMAX [Concomitant]
     Active Substance: AZITHROMYCIN DIHYDRATE
     Indication: PRODUCT USED FOR UNKNOWN INDICATION
     Dosage: 1 DF, (MONDAY, WEDNESDAY AND FRIDAY)
     Route: 048
  7. FERROUS SULFATE. [Concomitant]
     Active Substance: FERROUS SULFATE
     Indication: PRODUCT USED FOR UNKNOWN INDICATION
     Dosage: 1 DF, QD
     Route: 048
  8. CEFDINIR. [Concomitant]
     Active Substance: CEFDINIR
     Indication: STREPTOCOCCUS TEST POSITIVE
     Route: 065
  9. DAPTOBIO [Concomitant]
     Indication: ENTEROCOCCAL INFECTION
     Dosage: UNK
     Route: 042
     Dates: start: 201602
  10. AMIKACIN. [Concomitant]
     Active Substance: AMIKACIN
     Indication: MYCOBACTERIUM ABSCESSUS INFECTION
     Dosage: UNK
     Route: 065
     Dates: start: 201611
  11. TYLENOL [Concomitant]
     Active Substance: ACETAMINOPHEN
     Indication: PYREXIA
     Dosage: 1 DF, Q4H (PRN)
     Route: 054
  12. ZOFRAN [Concomitant]
     Active Substance: ONDANSETRON HYDROCHLORIDE
     Indication: NAUSEA
     Dosage: 1 DF, Q8H (PRN)
     Route: 048
  13. PENICILLIN [Concomitant]
     Active Substance: PENICILLIN
     Indication: ENTEROCOCCAL INFECTION
     Dosage: 500 MG, BID
     Route: 065
     Dates: start: 201601
  14. MARINOL [Concomitant]
     Active Substance: DRONABINOL
     Indication: DECREASED APPETITE
     Route: 065
  15. CORDARONE [Concomitant]
     Active Substance: AMIODARONE HYDROCHLORIDE
     Indication: PRODUCT USED FOR UNKNOWN INDICATION
     Dosage: 1 DF, QD
     Route: 048
     Dates: end: 20190716
  16. OCEAN SALINE NASAL SPRAY [Concomitant]
     Active Substance: SODIUM CHLORIDE
     Indication: PRODUCT USED FOR UNKNOWN INDICATION
     Dosage: 1-2 DF, BID
     Route: 045
  17. INSULIN ASPART [Concomitant]
     Active Substance: INSULIN ASPART
     Indication: PRODUCT USED FOR UNKNOWN INDICATION
     Dosage: 1-2 UNITS (100 UNIT/ML), QHS
     Route: 058
  18. SIVEXTRO [Concomitant]
     Active Substance: TEDIZOLID PHOSPHATE
     Indication: PRODUCT USED FOR UNKNOWN INDICATION
     Dosage: 1 DF, QD
     Route: 048
  19. TYLENOL [Concomitant]
     Active Substance: ACETAMINOPHEN
     Indication: PYREXIA
  20. COUMADIN [Concomitant]
     Active Substance: WARFARIN SODIUM
     Indication: PRODUCT USED FOR UNKNOWN INDICATION
     Dosage: 0.5 DF, QD
     Route: 065
  21. LAMPRENE [Suspect]
     Active Substance: CLOFAZIMINE
     Indication: MYCOBACTERIUM ABSCESSUS INFECTION
     Dosage: 100 MG, QD
     Route: 048
  22. GENTAMICIN. [Concomitant]
     Active Substance: GENTAMICIN
     Indication: STREPTOCOCCUS TEST POSITIVE
     Dosage: UNK
     Route: 065
     Dates: start: 201509
  23. ALBUTEROL. [Concomitant]
     Active Substance: ALBUTEROL
     Indication: PRODUCT USED FOR UNKNOWN INDICATION
     Dosage: ONE PUFF, WAIT 5 MINUTES THEN SECOND PUFF
     Route: 055
  24. FOLIC ACID. [Concomitant]
     Active Substance: FOLIC ACID
     Indication: PRODUCT USED FOR UNKNOWN INDICATION
     Dosage: 1 DF, QD (EVENING)
     Route: 048
  25. GENTAMICIN. [Concomitant]
     Active Substance: GENTAMICIN
     Indication: ENTEROCOCCAL INFECTION
  26. LINEZOLID. [Concomitant]
     Active Substance: LINEZOLID
     Indication: ENTEROCOCCAL INFECTION
     Dosage: UNK
     Route: 065
     Dates: start: 201604
  27. AZITHROMYCIN ANHYDROUS. [Concomitant]
     Active Substance: AZITHROMYCIN ANHYDROUS
     Indication: MYCOBACTERIUM ABSCESSUS INFECTION
     Route: 065
  28. TEDIZOLID [Concomitant]
     Active Substance: TEDIZOLID
     Indication: ENTEROCOCCAL INFECTION
     Dosage: UNK
     Route: 065
     Dates: start: 201609
  29. CEFOXITIN [Concomitant]
     Active Substance: CEFOXITIN SODIUM
     Indication: MYCOBACTERIUM ABSCESSUS INFECTION
     Dosage: UNK
     Route: 065
  30. INSULIN ASPART [Concomitant]
     Active Substance: INSULIN ASPART
     Dosage: 1-4 UNITS (100 UNIT/ML), TID
     Route: 058
  31. PANTOPRAZOLE [Concomitant]
     Active Substance: PANTOPRAZOLE
     Indication: PRODUCT USED FOR UNKNOWN INDICATION
     Dosage: 1 DF, Q8H
     Route: 048
     Dates: end: 20190716
  32. MIRALAX [Concomitant]
     Active Substance: POLYETHYLENE GLYCOL 3350
     Indication: PRODUCT USED FOR UNKNOWN INDICATION
     Dosage: 1 DF, QD (PRN)
     Route: 048

REACTIONS (5)
  - Dementia [Fatal]
  - Urinary tract infection [Fatal]
  - Decreased appetite [Fatal]
  - Asthenia [Fatal]
  - Failure to thrive [Fatal]

NARRATIVE: CASE EVENT DATE: 20190701
